FAERS Safety Report 6866474-1 (Version None)
Quarter: 2010Q3

REPORT INFORMATION
  Report Type: 
  Country: None (occurrence: None)
  Receive Date: 20100722
  Receipt Date: 20100708
  Transmission Date: 20110219
  Serious: No
  Sender: FDA-Public Use
  Company Number: US-B.I. PHARMACEUTICALS,INC./RIDGEFIELD-2010-BP-07740BP

PATIENT
  Sex: Female

DRUGS (4)
  1. MICARDIS [Suspect]
     Indication: HYPERTENSION
     Dosage: 40 MG
     Route: 048
     Dates: start: 20090101
  2. ZOCOR [Suspect]
     Indication: BLOOD CHOLESTEROL INCREASED
     Dates: start: 20090101, end: 20100601
  3. CALAN [Concomitant]
     Indication: HYPERTENSION
  4. FOSAMAX [Concomitant]
     Indication: OSTEOPOROSIS
     Dates: start: 20060101

REACTIONS (7)
  - BACK PAIN [None]
  - CHEST PAIN [None]
  - DIZZINESS [None]
  - DYSPHAGIA [None]
  - FATIGUE [None]
  - MUSCLE SPASMS [None]
  - MUSCULAR WEAKNESS [None]
